FAERS Safety Report 5921203-0 (Version None)
Quarter: 2008Q4

REPORT INFORMATION
  Report Type: 
  Country: None (occurrence: None)
  Receive Date: 20081016
  Receipt Date: 20081008
  Transmission Date: 20090506
  Serious: No
  Sender: FDA-Public Use
  Company Number: US-B.I. PHARMACEUTICALS,INC./RIDGEFIELD-2008-BP-14688BP

PATIENT
  Age: 17 Year
  Sex: Female

DRUGS (3)
  1. MIRAPEX [Suspect]
     Indication: DEPRESSION
     Route: 048
     Dates: start: 20080825, end: 20080830
  2. CYMBALTA [Concomitant]
     Indication: DEPRESSION
  3. ADDERALL 10 [Concomitant]
     Indication: DEPRESSION

REACTIONS (3)
  - FEELING ABNORMAL [None]
  - IMPULSIVE BEHAVIOUR [None]
  - SHOPLIFTING [None]
